FAERS Safety Report 4274790-5 (Version None)
Quarter: 2004Q1

REPORT INFORMATION
  Report Type: 
  Country: None (occurrence: None)
  Receive Date: 20040115
  Receipt Date: 20040105
  Transmission Date: 20041129
  Serious: Yes (Other)
  Sender: FDA-Public Use
  Company Number: JP-JNJFOC-20031105407

PATIENT
  Age: 72 Year
  Sex: Female

DRUGS (19)
  1. REMICADE [Suspect]
     Indication: RHEUMATOID ARTHRITIS
     Dosage: SEE IMAGE
     Route: 041
     Dates: start: 20031003, end: 20031003
  2. REMICADE [Suspect]
     Indication: RHEUMATOID ARTHRITIS
     Dosage: SEE IMAGE
     Route: 041
     Dates: start: 20031016, end: 20031016
  3. RHEUMATREX [Suspect]
     Indication: RHEUMATOID ARTHRITIS
     Dosage: SEE IMAGE
     Route: 048
     Dates: start: 19980101, end: 20010423
  4. RHEUMATREX [Suspect]
     Indication: RHEUMATOID ARTHRITIS
     Dosage: SEE IMAGE
     Route: 048
     Dates: start: 20010424, end: 20030302
  5. RHEUMATREX [Suspect]
     Indication: RHEUMATOID ARTHRITIS
     Dosage: SEE IMAGE
     Route: 048
     Dates: start: 20031013, end: 20031115
  6. RHEUMATREX [Suspect]
     Indication: RHEUMATOID ARTHRITIS
     Dosage: SEE IMAGE
     Route: 048
     Dates: start: 20030303
  7. PREDNISOLONE [Concomitant]
  8. MOBIC [Concomitant]
  9. FOLIAMIN (FOLIC ACID) [Concomitant]
  10. BONALON (ALENDRONATE SODIUM) [Concomitant]
  11. SPLENDIL (FELODIPINE) [Concomitant]
  12. KAMA (ALL OTHER THERAPEUTIC PRODUCTS) [Concomitant]
  13. FAMOTIDINE [Concomitant]
  14. MUCOSTA (REBAMIPIDE) [Concomitant]
  15. LASIX [Concomitant]
  16. SLOW-K [Concomitant]
  17. LENDORM [Concomitant]
  18. PRORENA L (LIMAPROST) [Concomitant]
  19. BACTRIM [Concomitant]

REACTIONS (5)
  - DIARRHOEA [None]
  - INTERSTITIAL LUNG DISEASE [None]
  - LYMPHOCYTE STIMULATION TEST POSITIVE [None]
  - PNEUMOCYSTIS CARINII PNEUMONIA [None]
  - PNEUMONIA [None]
